FAERS Safety Report 4476747-8 (Version None)
Quarter: 2004Q4

REPORT INFORMATION
  Report Type: 
  Country: None (occurrence: None)
  Receive Date: 20041013
  Receipt Date: 20040927
  Transmission Date: 20050328
  Serious: Yes (Disabling, Other)
  Sender: FDA-Public Use
  Company Number: US_000949103

PATIENT
  Age: 39 Year
  Sex: Male
  Weight: 80 kg

DRUGS (10)
  1. HUMALOG [Suspect]
     Indication: DIABETES MELLITUS
     Dates: start: 19980101
  2. HUMULIN N [Suspect]
     Indication: DIABETES MELLITUS
     Dosage: 10 U/2 DAY
     Dates: start: 19980101, end: 20040816
  3. INSULIN [Suspect]
     Indication: DIABETES MELLITUS
     Dates: start: 19640101
  4. HUMULIN R [Suspect]
     Indication: DIABETES MELLITUS
  5. DILANTIN [Concomitant]
  6. DEPAKOTE [Concomitant]
  7. LAMICTAL [Concomitant]
  8. TEGRETOL (CARBAMAZEPINE RIVOPHARM) [Concomitant]
  9. NOVOLIN (INSULIN HUMAN INJECTION, ISOPHANE) [Concomitant]
  10. LANTUS [Concomitant]

REACTIONS (8)
  - BLOOD GLUCOSE FLUCTUATION [None]
  - CEREBRAL DISORDER [None]
  - CONVULSION [None]
  - DIABETES MELLITUS INSULIN-DEPENDENT [None]
  - EXCITABILITY [None]
  - FATIGUE [None]
  - SCAR [None]
  - STRESS SYMPTOMS [None]
